FAERS Safety Report 21492941 (Version 1)
Quarter: 2022Q4

REPORT INFORMATION
  Report Type: Report from Study
  Country: US (occurrence: US)
  Receive Date: 20221021
  Receipt Date: 20221021
  Transmission Date: 20230113
  Serious: Yes (Other)
  Sender: FDA-Public Use
  Company Number: US-BRISTOL-MYERS SQUIBB COMPANY-2022-121913

PATIENT
  Age: 72 Year
  Sex: Male
  Weight: 92.986 kg

DRUGS (1)
  1. REVLIMID [Suspect]
     Active Substance: LENALIDOMIDE
     Indication: Product used for unknown indication
     Dosage: FREQUENCY: EVERYDAY
     Route: 048
     Dates: start: 20200104

REACTIONS (1)
  - Exostosis of jaw [Recovered/Resolved]
